FAERS Safety Report 13977260 (Version 1)
Quarter: 2017Q3

REPORT INFORMATION
  Report Type: Spontaneous
  Country: US (occurrence: US)
  Receive Date: 20170915
  Receipt Date: 20170915
  Transmission Date: 20171128
  Serious: No
  Sender: FDA-Public Use
  Company Number: US-ROCHE-704864

PATIENT
  Sex: Female

DRUGS (2)
  1. HERCEPTIN [Suspect]
     Active Substance: TRASTUZUMAB
     Indication: BREAST CANCER METASTATIC
     Dosage: RECEIVED 3 BAGS
     Route: 042
  2. XELODA [Suspect]
     Active Substance: CAPECITABINE
     Indication: BREAST CANCER METASTATIC
     Dosage: DOSE: 3 TABLETS, FREQUENCY: 1 WEEK ON AND 1WEEK OFF.
     Route: 048

REACTIONS (6)
  - Disturbance in attention [Unknown]
  - Hypoaesthesia [Unknown]
  - Skin discolouration [Unknown]
  - Memory impairment [Unknown]
  - Skin odour abnormal [Unknown]
  - Pruritus [Recovering/Resolving]
